FAERS Safety Report 10134522 (Version 1)
Quarter: 2014Q2

REPORT INFORMATION
  Report Type: Spontaneous
  Country: FR (occurrence: FR)
  Receive Date: 20140428
  Receipt Date: 20140428
  Transmission Date: 20141212
  Serious: Yes (Other)
  Sender: FDA-Public Use
  Company Number: FR-DSJP-DSE-2014-106506

PATIENT
  Sex: 0

DRUGS (1)
  1. OLMETEC 20 MG [Suspect]
     Indication: HYPERTENSION
     Dosage: UNK

REACTIONS (1)
  - Acute coronary syndrome [Unknown]
